FAERS Safety Report 7920934-0 (Version None)
Quarter: 2011Q4

REPORT INFORMATION
  Report Type: 
  Country: None (occurrence: None)
  Receive Date: 20111117
  Receipt Date: 20111110
  Transmission Date: 20120403
  Serious: Yes (Hospitalization, Other)
  Sender: FDA-Public Use
  Company Number: US-ACTELION-A-NJ2010-42702

PATIENT

DRUGS (3)
  1. REVATIO [Concomitant]
  2. TRACLEER [Suspect]
     Indication: PULMONARY ARTERIAL HYPERTENSION
     Dosage: UNK
     Route: 048
     Dates: start: 20060221
  3. COUMADIN [Concomitant]

REACTIONS (7)
  - PULMONARY OEDEMA [None]
  - ENDOTRACHEAL INTUBATION [None]
  - PNEUMONIA [None]
  - SEPSIS [None]
  - SWELLING [None]
  - DYSPNOEA [None]
  - CARDIAC FAILURE CONGESTIVE [None]
